FAERS Safety Report 8156179-1 (Version None)
Quarter: 2012Q1

REPORT INFORMATION
  Report Type: 
  Country: None (occurrence: None)
  Receive Date: 20120103
  Receipt Date: 20111025
  Transmission Date: 20120608
  Serious: No
  Sender: FDA-Public Use
  Company Number: AE-2011-002689

PATIENT
  Age: 58 Year
  Sex: Male
  Weight: 86.637 kg

DRUGS (6)
  1. INCIVEK (TELAPREVIR) [Suspect]
     Dosage: 2250 MG (750 MG, 1 IN 8 HR), ORAL
     Route: 048
     Dates: start: 20111023
  2. COPEGUS [Concomitant]
  3. PAXIL [Concomitant]
  4. CENTRUM SILVER (CENTRUM SILVER) [Concomitant]
  5. PEGINTERFERON (PEGINTERFERON ALFA-2A) [Concomitant]
  6. SYNTHROID [Concomitant]

REACTIONS (4)
  - POOR QUALITY SLEEP [None]
  - HEADACHE [None]
  - HYPERHIDROSIS [None]
  - NAUSEA [None]
